FAERS Safety Report 5193186-5 (Version None)
Quarter: 2006Q4

REPORT INFORMATION
  Report Type: 
  Country: None (occurrence: None)
  Receive Date: 20061221
  Receipt Date: 20061206
  Transmission Date: 20070319
  Serious: Yes (Death)
  Sender: FDA-Public Use
  Company Number: 2006US002264

PATIENT
  Age: 69 Year
  Sex: Male

DRUGS (3)
  1. AMBISOME [Suspect]
     Indication: PNEUMONIA
     Dosage: 150 MG, UID/QD, IV DRIP
     Route: 041
     Dates: start: 20060907, end: 20060914
  2. TIENAM (IMIPENEM, CILASTATIN SODIUM) [Concomitant]
  3. MICAFUNGIN [Concomitant]

REACTIONS (6)
  - ANGER [None]
  - DISEASE PROGRESSION [None]
  - GENERAL PHYSICAL HEALTH DETERIORATION [None]
  - MALAISE [None]
  - PAIN [None]
  - PNEUMONIA [None]
